FAERS Safety Report 9853351 (Version 1)
Quarter: 2014Q1

REPORT INFORMATION
  Report Type: Spontaneous
  Country: CA (occurrence: CA)
  Receive Date: 20140129
  Receipt Date: 20140129
  Transmission Date: 20141002
  Serious: Yes (Hospitalization)
  Sender: FDA-Public Use
  Company Number: PHHY2014CA009305

PATIENT
  Age: 12 Year
  Sex: Male

DRUGS (5)
  1. ETHAMBUTOL [Suspect]
     Indication: TUBERCULOSIS
     Dosage: 800 MG, UNK
  2. RIFAMPICIN [Suspect]
     Indication: TUBERCULOSIS
     Dosage: 600 MG, UNK
  3. PYRAZINAMIDE [Suspect]
     Indication: TUBERCULOSIS
     Dosage: 1 G, UNK
  4. METHYLPREDNISOLONE [Suspect]
     Dosage: 0.8 MG/KG, UNK
  5. METHYLPREDNISOLONE [Suspect]
     Dosage: 0.5 MG/KG, BID

REACTIONS (25)
  - Drug reaction with eosinophilia and systemic symptoms [Recovered/Resolved]
  - Rash pruritic [Recovered/Resolved]
  - Diarrhoea [Recovered/Resolved]
  - Pyrexia [Recovered/Resolved]
  - Vomiting [Recovered/Resolved]
  - Abdominal pain [Recovered/Resolved]
  - Abdominal distension [Recovered/Resolved]
  - Rash maculo-papular [Recovered/Resolved]
  - Rash erythematous [Recovered/Resolved]
  - Purpura [Recovered/Resolved]
  - Abdominal tenderness [Recovered/Resolved]
  - Lymphadenopathy [Recovered/Resolved]
  - Eosinophilia [Recovered/Resolved]
  - Lymphopenia [Recovered/Resolved]
  - Lymphocytosis [Recovered/Resolved]
  - Thrombocytopenia [Recovered/Resolved]
  - Alanine aminotransferase increased [Recovered/Resolved]
  - Aspartate aminotransferase increased [Recovered/Resolved]
  - Gamma-glutamyltransferase increased [Recovered/Resolved]
  - Renal failure acute [Recovered/Resolved]
  - Lymphocytic infiltration [Recovered/Resolved]
  - Hepatitis [Recovered/Resolved]
  - Myalgia [Recovered/Resolved]
  - Myoglobinuria [Recovered/Resolved]
  - Drug effect incomplete [Unknown]
